FAERS Safety Report 8947404 (Version 1)
Quarter: 2012Q4

REPORT INFORMATION
  Report Type: 
  Country: GB (occurrence: GB)
  Receive Date: 20121205
  Receipt Date: 20121205
  Transmission Date: 20130627
  Serious: Yes (Hospitalization)
  Sender: FDA-Public Use
  Company Number: GB-PFIZER INC-2012301403

PATIENT
  Age: 73 Year
  Sex: Female
  Weight: 101.8 kg

DRUGS (7)
  1. GENOTROPIN [Suspect]
     Dosage: 0.6 mg, 1x/day,7 injections/week
     Route: 058
     Dates: start: 20040922
  2. PROPRANOLOL [Concomitant]
     Indication: HYPERTENSION
     Dosage: UNK
     Dates: start: 19990216
  3. PROPRANOLOL [Concomitant]
     Indication: ANGINA PECTORIS
  4. PROPRANOLOL [Concomitant]
     Indication: ANXIETY
  5. THYROXINE [Concomitant]
     Indication: HYPOTHYROIDISM
     Dosage: UNK
     Dates: start: 19991105
  6. HYDROCORTISONE [Concomitant]
     Indication: ACTH DECREASED
     Dosage: UNK
     Dates: start: 20021031
  7. DOTHIEPIN [Concomitant]
     Indication: DEPRESSION
     Dosage: UNK
     Dates: start: 20030821

REACTIONS (1)
  - Renal disorder [Unknown]
